FAERS Safety Report 16803956 (Version 1)
Quarter: 2019Q3

REPORT INFORMATION
  Report Type: Spontaneous
  Country: US (occurrence: US)
  Receive Date: 20190723
  Receipt Date: 20190723
  Transmission Date: 20191005
  Serious: Yes (Hospitalization)
  Sender: FDA-Public Use
  Company Number: None

PATIENT
  Age: 66 Year
  Sex: Male
  Weight: 66.5 kg

DRUGS (1)
  1. VITAMIN D3 [Suspect]
     Active Substance: CHOLECALCIFEROL
     Indication: VITAMIN D DEFICIENCY
     Dosage: ?          OTHER ROUTE:OP?

REACTIONS (12)
  - Hypophagia [None]
  - Nausea [None]
  - Lymphocyte count decreased [None]
  - Pyrexia [None]
  - Oropharyngeal pain [None]
  - Fatigue [None]
  - White blood cell count decreased [None]
  - Haemoglobin decreased [None]
  - Neutropenia [None]
  - Diffuse large B-cell lymphoma [None]
  - Fluid intake reduced [None]
  - Vomiting [None]

NARRATIVE: CASE EVENT DATE: 20190721
